FAERS Safety Report 5863465-4 (Version None)
Quarter: 2008Q3

REPORT INFORMATION
  Report Type: 
  Country: None (occurrence: None)
  Receive Date: 20080828
  Receipt Date: 20080818
  Transmission Date: 20090109
  Serious: Yes (Death, Other)
  Sender: FDA-Public Use
  Company Number: US-PFIZER INC-2005151161

PATIENT
  Sex: Male
  Weight: 86 kg

DRUGS (6)
  1. CELEBREX [Suspect]
     Indication: RHEUMATOID ARTHRITIS
     Dates: start: 20010101, end: 20031017
  2. VIOXX [Concomitant]
     Route: 065
  3. PREDNISONE TAB [Concomitant]
     Route: 065
  4. METHOTREXATE [Concomitant]
     Route: 065
  5. DARVOCET-N 100 [Concomitant]
     Route: 065
  6. CODEINE SUL TAB [Concomitant]
     Route: 065

REACTIONS (4)
  - CARDIAC ARREST [None]
  - HYPERTENSION [None]
  - MYOCARDIAL INFARCTION [None]
  - OEDEMA [None]
